FAERS Safety Report 6403950-X (Version None)
Quarter: 2009Q4

REPORT INFORMATION
  Report Type: 
  Country: None (occurrence: None)
  Receive Date: 20091016
  Receipt Date: 20090729
  Transmission Date: 20100525
  Serious: No
  Sender: FDA-Public Use
  Company Number: US-ALEXION-A200900458

PATIENT
  Sex: Female
  Weight: 69.206 kg

DRUGS (23)
  1. SOLIRIS [Suspect]
     Indication: PAROXYSMAL NOCTURNAL HAEMOGLOBINURIA
     Dosage: UNK
     Route: 042
     Dates: start: 20071213
  2. SOLIRIS [Suspect]
     Dosage: 900 MG Q2W
     Route: 042
  3. FOLIC ACID [Concomitant]
     Dosage: 1 MG, QD
     Route: 048
  4. AMITRIPTYLINE HCL [Concomitant]
     Dosage: 50 MG, QD, AT BEDTIME
     Route: 048
  5. ANTIHISTAMINES [Concomitant]
     Dosage: UNK
     Route: 048
  6. BENICAR [Concomitant]
     Dosage: 1 TAB, QD
     Route: 048
     Dates: end: 20090629
  7. DARVOCET-N 100 [Concomitant]
     Dosage: 100/650 MG,  PRN, QD
     Route: 048
  8. ACETAMINOPHEN AND HYDROCODONE BITARTRATE [Concomitant]
     Dosage: 5/500 MG, PRN, QD
     Route: 048
  9. IMITREX                            /01044801/ [Concomitant]
     Dosage: 100 MG, PRN, QD
     Route: 048
  10. LEVOXYL [Concomitant]
     Dosage: 100 UG, QOD
     Route: 048
  11. MENEST [Concomitant]
     Dosage: 0.9 MG, QOD
     Route: 048
  12. NEURONTIN [Concomitant]
     Dosage: 800 MG, BID
     Route: 048
  13. PROPRANOLOL HYDROCHLORIDE [Concomitant]
     Dosage: 80 MG, QD
     Route: 048
  14. TRIAMTERENE [Concomitant]
     Dosage: 1 CAP, QD
     Route: 048
  15. VERAPAMIL HCL [Concomitant]
     Dosage: 1 TAB, QD
     Route: 048
     Dates: end: 20090629
  16. VITAMIN B12                        /00056201/ [Concomitant]
     Dosage: 1000 UG, QD
     Route: 048
  17. WARFARIN SODIUM [Concomitant]
     Dosage: 2.5 MG, Q 3 DAYS
     Route: 048
     Dates: end: 20090629
  18. WARFARIN SODIUM [Concomitant]
     Dosage: 5 MG, Q 4 DAYS
     Route: 048
  19. PROCRIT                            /00909301/ [Concomitant]
     Dosage: 40000 IU, UNK
     Route: 058
     Dates: start: 20080221, end: 20090701
  20. DANAZOL [Concomitant]
     Dosage: UNK
     Dates: end: 20090629
  21. LISINOPRIL [Concomitant]
     Dosage: UNK
     Dates: end: 20090629
  22. CLONIDINE [Concomitant]
     Dosage: 0.1 MG, QD
     Route: 048
     Dates: end: 20090101
  23. VITAMIN C                          /00008001/ [Concomitant]
     Dosage: 1000 MG, QD
     Route: 048
     Dates: end: 20090101

REACTIONS (11)
  - BACK PAIN [None]
  - BLOOD LACTATE DEHYDROGENASE INCREASED [None]
  - CHEST DISCOMFORT [None]
  - DISCOMFORT [None]
  - DYSPNOEA EXERTIONAL [None]
  - FLUID RETENTION [None]
  - HAEMATOCRIT DECREASED [None]
  - HAEMOGLOBIN DECREASED [None]
  - HAEMOLYSIS [None]
  - MALAISE [None]
  - MYELODYSPLASTIC SYNDROME [None]
